FAERS Safety Report 9165477 (Version 1)
Quarter: 2013Q1

REPORT INFORMATION
  Report Type: Spontaneous
  Country: US (occurrence: None)
  Receive Date: 20130314
  Receipt Date: 20130314
  Transmission Date: 20140127
  Serious: Yes (Other)
  Sender: FDA-Public Use
  Company Number: None

PATIENT
  Sex: Male

DRUGS (1)
  1. VOTRIENT 200MG GLAXO SMITH KLINE [Suspect]
     Indication: RENAL CELL CARCINOMA
     Route: 048
     Dates: start: 20110101

REACTIONS (4)
  - Contusion [None]
  - Haemorrhage [None]
  - Skin fragility [None]
  - Dyspnoea [None]
